FAERS Safety Report 25314425 (Version 1)
Quarter: 2025Q2

REPORT INFORMATION
  Report Type: Spontaneous
  Country: IL (occurrence: IL)
  Receive Date: 20250514
  Receipt Date: 20250514
  Transmission Date: 20250716
  Serious: Yes (Hospitalization, Other)
  Sender: GLAXOSMITHKLINE
  Company Number: IL-GLAXOSMITHKLINE INC-IL2025EME055041

PATIENT

DRUGS (5)
  1. LAMOTRIGINE [Interacting]
     Active Substance: LAMOTRIGINE
     Indication: Product used for unknown indication
     Dosage: 200 MG, QD
  2. DIANE (CYPROTERONE ACETATE\ETHINYL ESTRADIOL) [Interacting]
     Active Substance: CYPROTERONE ACETATE\ETHINYL ESTRADIOL
     Indication: Androgen therapy
  3. VYVANSE [Concomitant]
     Active Substance: LISDEXAMFETAMINE DIMESYLATE
     Indication: Product used for unknown indication
     Dosage: 70 MG, QD
  4. SERTRALINE [Concomitant]
     Active Substance: SERTRALINE HYDROCHLORIDE
     Indication: Product used for unknown indication
     Dosage: 150 MG, QD
  5. QUETIAPINE [Concomitant]
     Active Substance: QUETIAPINE
     Indication: Product used for unknown indication
     Dosage: 150 MG, QD

REACTIONS (5)
  - Bipolar disorder [Recovering/Resolving]
  - Condition aggravated [Recovering/Resolving]
  - Attention deficit hyperactivity disorder [Recovering/Resolving]
  - Post-traumatic stress disorder [Recovering/Resolving]
  - Drug interaction [Recovering/Resolving]
